FAERS Safety Report 11861934 (Version 1)
Quarter: 2015Q4

REPORT INFORMATION
  Report Type: Spontaneous
  Country: US (occurrence: US)
  Receive Date: 20151222
  Receipt Date: 20151222
  Transmission Date: 20160305
  Serious: No
  Sender: FDA-Public Use
  Company Number: US-ROCHE-648497

PATIENT
  Sex: Female

DRUGS (2)
  1. COPEGUS [Suspect]
     Active Substance: RIBAVIRIN
     Indication: HEPATITIS C
     Route: 048
  2. PEGASYS [Suspect]
     Active Substance: PEGINTERFERON ALFA-2A
     Indication: HEPATITIS C
     Dosage: FORMMULATION: PRE-FILLED SYRINGE
     Route: 058

REACTIONS (8)
  - Asthenia [Not Recovered/Not Resolved]
  - Hypotension [Unknown]
  - Headache [Unknown]
  - Pyrexia [Recovered/Resolved]
  - Dizziness [Not Recovered/Not Resolved]
  - Chills [Unknown]
  - Pain in extremity [Recovered/Resolved]
  - Nausea [Unknown]
